FAERS Safety Report 20933325 (Version 1)
Quarter: 2022Q2

REPORT INFORMATION
  Report Type: Spontaneous
  Country: US (occurrence: None)
  Receive Date: 20220607
  Receipt Date: 20220607
  Transmission Date: 20220721
  Serious: No
  Sender: FDA-Public Use
  Company Number: None

PATIENT
  Sex: Male
  Weight: 58.06 kg

DRUGS (2)
  1. PROLIA [Suspect]
     Active Substance: DENOSUMAB
     Indication: Osteoporosis
  2. PROLIA [Suspect]
     Active Substance: DENOSUMAB
     Indication: Rheumatoid arthritis

REACTIONS (8)
  - Fall [None]
  - Femur fracture [None]
  - Upper limb fracture [None]
  - Dyspnoea [None]
  - Skin irritation [None]
  - Dysphonia [None]
  - Myalgia [None]
  - Pruritus [None]
